FAERS Safety Report 17956287 (Version 1)
Quarter: 2020Q2

REPORT INFORMATION
  Report Type: Spontaneous
  Country: CA (occurrence: CA)
  Receive Date: 20200629
  Receipt Date: 20200629
  Transmission Date: 20200714
  Serious: Yes (Other)
  Sender: FDA-Public Use
  Company Number: CA-ACCORD-187139

PATIENT
  Age: 48 Year
  Sex: Male

DRUGS (15)
  1. XARELTO [Concomitant]
     Active Substance: RIVAROXABAN
     Dosage: 1 EVERY 1 DAYS
  2. ASCORBIC ACID. [Concomitant]
     Active Substance: ASCORBIC ACID
     Dosage: 1 EVERY 1 DAYS
  3. GABAPENTIN. [Concomitant]
     Active Substance: GABAPENTIN
     Dosage: 2 EVERY 1 DAYS
  4. DIAZEPAM. [Concomitant]
     Active Substance: DIAZEPAM
     Dosage: 4 EVERY 1 DAYS
  5. CALCIUM PANTOTHENATE/NICOTINAMIDE/PYRIDOXINE HYDROCHLORIDE/RIBOFLAVIN/THIAMINE HYDROCHLORIDE [Suspect]
     Active Substance: CALCIUM PANTOTHENATE\NIACINAMIDE\PYRIDOXINE HYDROCHLORIDE\RIBOFLAVIN\THIAMINE HYDROCHLORIDE
     Indication: STIFF PERSON SYNDROME
  6. BACLOFEN. [Concomitant]
     Active Substance: BACLOFEN
     Dosage: 4 EVERY 1 DAYS
  7. VENTOLIN [Concomitant]
     Active Substance: ALBUTEROL SULFATE
  8. SYMBICORT [Concomitant]
     Active Substance: BUDESONIDE\FORMOTEROL FUMARATE DIHYDRATE
  9. SINGULAIR [Concomitant]
     Active Substance: MONTELUKAST SODIUM
     Dosage: 1 EVERY 1 DAYS
  10. AZATHIOPRINE. [Suspect]
     Active Substance: AZATHIOPRINE
     Indication: PRODUCT USED FOR UNKNOWN INDICATION
  11. DIFLUCAN [Concomitant]
     Active Substance: FLUCONAZOLE
  12. DEXILANT [Concomitant]
     Active Substance: DEXLANSOPRAZOLE
     Dosage: 1 EVERY 1 DAYS
  13. MYCOPHENOLIC ACID. [Suspect]
     Active Substance: MYCOPHENOLIC ACID
     Indication: STIFF PERSON SYNDROME
  14. RITUXIMAB. [Suspect]
     Active Substance: RITUXIMAB
     Indication: STIFF PERSON SYNDROME
     Route: 042
  15. POLYSACCHARIDE-IRON COMPLEX [Concomitant]
     Active Substance: FERRIC POLYSACCHARIDE COMPLEX
     Dosage: 1 EVERY 1 DAYS

REACTIONS (5)
  - Stiff person syndrome [Not Recovered/Not Resolved]
  - Off label use [Unknown]
  - Lower respiratory tract infection [Not Recovered/Not Resolved]
  - Therapeutic response shortened [Unknown]
  - Pneumonia [Not Recovered/Not Resolved]
